FAERS Safety Report 7501277-6 (Version None)
Quarter: 2011Q2

REPORT INFORMATION
  Report Type: 
  Country: None (occurrence: None)
  Receive Date: 20110524
  Receipt Date: 20110517
  Transmission Date: 20111010
  Serious: Yes (Life-Threatening, Hospitalization)
  Sender: FDA-Public Use
  Company Number: FR-GILEAD-2011-0039589

PATIENT

DRUGS (12)
  1. NORVIR [Suspect]
     Indication: HIV INFECTION
     Route: 048
     Dates: end: 20110407
  2. EMEND [Concomitant]
     Indication: CHEMOTHERAPY
     Route: 048
     Dates: start: 20110318, end: 20110319
  3. ONDANSETRON [Concomitant]
     Indication: HIV INFECTION
     Route: 042
     Dates: start: 20110318, end: 20110319
  4. TRUVADA [Suspect]
     Indication: HIV INFECTION
     Route: 048
     Dates: end: 20110405
  5. TRABECTEDIN [Suspect]
     Indication: SARCOMA UTERUS
     Route: 042
     Dates: start: 20110318, end: 20110318
  6. NEXIUM [Concomitant]
     Route: 048
     Dates: start: 20110317
  7. VOGALENE [Concomitant]
     Indication: CHEMOTHERAPY
     Dates: start: 20110317
  8. OESTRODOSE [Concomitant]
     Route: 003
  9. BACTRIM [Suspect]
     Route: 048
     Dates: start: 20110317
  10. PREZISTA [Suspect]
     Indication: HIV INFECTION
     Route: 048
     Dates: end: 20110407
  11. ACETAMINOPHEN [Concomitant]
     Route: 048
     Dates: start: 20110317, end: 20110405
  12. DEXAMETHASONE [Concomitant]
     Indication: HIV INFECTION
     Route: 042
     Dates: start: 20110318, end: 20110319

REACTIONS (4)
  - ANURIA [None]
  - RHABDOMYOLYSIS [None]
  - RENAL FAILURE ACUTE [None]
  - HEPATIC ENZYME INCREASED [None]
